FAERS Safety Report 20841089 (Version 1)
Quarter: 2022Q2

REPORT INFORMATION
  Report Type: Spontaneous
  Country: US (occurrence: US)
  Receive Date: 20220517
  Receipt Date: 20220517
  Transmission Date: 20220721
  Serious: No
  Sender: FDA-Public Use
  Company Number: US-PFIZER INC-202200019762

PATIENT
  Age: 68 Year
  Sex: Male
  Weight: 97.52 kg

DRUGS (4)
  1. DEPO-TESTOSTERONE [Suspect]
     Active Substance: TESTOSTERONE CYPIONATE
     Indication: Testis cancer
     Dosage: 200 MG/ML
  2. DEPO-TESTOSTERONE [Suspect]
     Active Substance: TESTOSTERONE CYPIONATE
     Dosage: 250 MG/ML
  3. DEPO-TESTOSTERONE [Suspect]
     Active Substance: TESTOSTERONE CYPIONATE
     Dosage: DOUBLING THE 100MG DOSE
  4. DEPO-TESTOSTERONE [Suspect]
     Active Substance: TESTOSTERONE CYPIONATE
     Dosage: 200 MG PER 1ML

REACTIONS (3)
  - Arthritis [Unknown]
  - Disease recurrence [Unknown]
  - Off label use [Unknown]
